FAERS Safety Report 21710328 (Version 3)
Quarter: 2022Q4

REPORT INFORMATION
  Report Type: Spontaneous
  Country: US (occurrence: US)
  Receive Date: 20221211
  Receipt Date: 20221215
  Transmission Date: 20230112
  Serious: No
  Sender: FDA-Public Use
  Company Number: US-002147023-NVSC2022US287089

PATIENT
  Sex: Male

DRUGS (2)
  1. MEKINIST [Suspect]
     Active Substance: TRAMETINIB DIMETHYL SULFOXIDE
     Indication: Langerhans^ cell histiocytosis
     Dosage: 2 ML, QD (DILUTE 1 WHOLE TABLET IN 5ML CLEAR LIQUID AND ADMINISTER 2 ML (0.2 MG) OF THE SOLUTION)
     Route: 048
     Dates: start: 202209
  2. MEKINIST [Suspect]
     Active Substance: TRAMETINIB DIMETHYL SULFOXIDE
     Dosage: 0.2 MG, QD
     Route: 048
     Dates: start: 20220915

REACTIONS (3)
  - Rash [Not Recovered/Not Resolved]
  - Erythema [Unknown]
  - Product use in unapproved indication [Unknown]
